FAERS Safety Report 5084523-0 (Version None)
Quarter: 2006Q3

REPORT INFORMATION
  Report Type: 
  Country: None (occurrence: None)
  Receive Date: 20060814
  Receipt Date: 20060726
  Transmission Date: 20061208
  Serious: Yes (Other)
  Sender: FDA-Public Use
  Company Number: JP200607005179

PATIENT
  Age: 45 Year
  Sex: Male

DRUGS (2)
  1. GEMZAR [Suspect]
     Indication: BILE DUCT CANCER
     Dosage: INTRAVENOUS
     Route: 042
  2. IRINOTECAN HCL [Concomitant]

REACTIONS (5)
  - ALOPECIA [None]
  - HEPATOMEGALY [None]
  - MALAISE [None]
  - METASTASES TO SKIN [None]
  - VENA CAVA THROMBOSIS [None]
